FAERS Safety Report 9633961 (Version 4)
Quarter: 2014Q1

REPORT INFORMATION
  Report Type: Report from Study
  Country: DE (occurrence: DE)
  Receive Date: 20131021
  Receipt Date: 20140303
  Transmission Date: 20141002
  Serious: Yes (Hospitalization)
  Sender: FDA-Public Use
  Company Number: DE-AMGEN-DEUCT2013073228

PATIENT
  Age: 80 Year
  Sex: Male
  Weight: 83 kg

DRUGS (8)
  1. DARBEPOETIN ALFA [Suspect]
     Indication: MYELODYSPLASTIC SYNDROME
     Dosage: 500 MUG, UNK
     Route: 065
     Dates: start: 20130807
  2. PANTOZOL                           /01263204/ [Concomitant]
     Dosage: 40 MG, UNK
     Dates: start: 20130124
  3. ASS [Concomitant]
     Dosage: 100 MG, UNK
     Dates: start: 20121206, end: 20131023
  4. BISOPROLOL [Concomitant]
     Dosage: 2.5 MG, UNK
     Dates: start: 20130124
  5. RAMIPRIL [Concomitant]
     Dosage: 10 MG, UNK
     Dates: start: 20121206
  6. GLIMEPIRIDE [Concomitant]
     Dosage: 2 MG, UNK
     Dates: start: 20121206
  7. LOCOL                              /01224502/ [Concomitant]
     Dosage: 40 MG, UNK
     Dates: start: 20121206
  8. AMLODIPIN                          /00972401/ [Concomitant]
     Dosage: 5 MG, UNK
     Dates: start: 20121206

REACTIONS (1)
  - Circulatory collapse [Recovered/Resolved]
